FAERS Safety Report 6098244-9 (Version None)
Quarter: 2009Q1

REPORT INFORMATION
  Report Type: 
  Country: None (occurrence: None)
  Receive Date: 20090227
  Receipt Date: 20090220
  Transmission Date: 20090719
  Serious: Yes (Hospitalization, Other)
  Sender: FDA-Public Use
  Company Number: US-AMGEN-QUU335021

PATIENT
  Sex: Female

DRUGS (2)
  1. ENBREL [Suspect]
     Indication: PSORIATIC ARTHROPATHY
     Route: 058
  2. ENBREL [Suspect]
     Indication: PSORIASIS

REACTIONS (7)
  - AORTIC VALVE DISEASE [None]
  - CARDIAC DISORDER [None]
  - CARDIAC MURMUR [None]
  - HIP ARTHROPLASTY [None]
  - OSTEOMYELITIS [None]
  - PSORIASIS [None]
  - THERAPEUTIC RESPONSE DECREASED [None]
